FAERS Safety Report 17537663 (Version 3)
Quarter: 2020Q2

REPORT INFORMATION
  Report Type: Spontaneous
  Country: DE (occurrence: DE)
  Receive Date: 20200313
  Receipt Date: 20200529
  Transmission Date: 20200713
  Serious: Yes (Congenital Anomaly, Other)
  Sender: FDA-Public Use
  Company Number: NVSC2020DE066330

PATIENT

DRUGS (1)
  1. VALSARTAN. [Suspect]
     Active Substance: VALSARTAN
     Indication: FOETAL EXPOSURE DURING PREGNANCY
     Dosage: MATERNAL DOSE:UNK
     Route: 064

REACTIONS (13)
  - Anuria [Unknown]
  - Venous thrombosis neonatal [Unknown]
  - Congenital renal disorder [Unknown]
  - Renal impairment neonatal [Unknown]
  - Muscle contracture [Unknown]
  - Pulmonary hypoplasia [Unknown]
  - Foetal disorder [Unknown]
  - Oligohydramnios [Unknown]
  - Cranial sutures widening [Unknown]
  - Thrombosis [Unknown]
  - Premature baby [Unknown]
  - Oliguria [Unknown]
  - Foetal exposure during pregnancy [Unknown]
